FAERS Safety Report 24677755 (Version 1)
Quarter: 2024Q4

REPORT INFORMATION
  Report Type: Report from Study
  Country: AR (occurrence: AR)
  Receive Date: 20241129
  Receipt Date: 20241129
  Transmission Date: 20250115
  Serious: Yes (Hospitalization)
  Sender: ABBVIE
  Company Number: AR-ABBVIE-6026254

PATIENT
  Age: 57 Year
  Sex: Female

DRUGS (2)
  1. RINVOQ [Suspect]
     Active Substance: UPADACITINIB
     Indication: Rheumatoid arthritis
     Dosage: FORM STRENGTH: 15 MG, MODIFIED-RELEASE FILM-COATED TABLET
     Route: 048
     Dates: start: 20230910
  2. RINVOQ [Suspect]
     Active Substance: UPADACITINIB
     Indication: Rheumatoid arthritis
     Dosage: FORM STRENGTH: 15 MG, MODIFIED-RELEASE FILM-COATED TABLET
     Route: 048

REACTIONS (3)
  - Bone pain [Unknown]
  - Dengue fever [Recovered/Resolved]
  - Dehydration [Unknown]
